FAERS Safety Report 10348922 (Version 1)
Quarter: 2014Q3

REPORT INFORMATION
  Report Type: Spontaneous
  Country: IT (occurrence: None)
  Receive Date: 20140725
  Receipt Date: 20140725
  Transmission Date: 20150326
  Serious: Yes (Hospitalization, Other)
  Sender: FDA-Public Use
  Company Number: ADR-2014-01298

PATIENT
  Age: 5 Year
  Sex: Male

DRUGS (8)
  1. PROPOFOL. [Suspect]
     Active Substance: PROPOFOL
  2. TIZANIDINE [Suspect]
     Active Substance: TIZANIDINE
  3. BACLOFEN. [Suspect]
     Active Substance: BACLOFEN
     Indication: DYSTONIA
  4. TETRABENAZINE [Suspect]
     Active Substance: TETRABENAZINE
  5. THIOPENTONE [Suspect]
     Active Substance: THIOPENTAL SODIUM
  6. DIAZEPAM. [Suspect]
     Active Substance: DIAZEPAM
  7. CLONAZEPAM. [Suspect]
     Active Substance: CLONAZEPAM
  8. MIDAZOLAM [Suspect]
     Active Substance: MIDAZOLAM\MIDAZOLAM HYDROCHLORIDE

REACTIONS (5)
  - Opisthotonus [None]
  - Clonus [None]
  - Tremor [None]
  - Dystonia [None]
  - Respiratory distress [None]
